FAERS Safety Report 8156913-0 (Version None)
Quarter: 2012Q1

REPORT INFORMATION
  Report Type: 
  Country: None (occurrence: None)
  Receive Date: 20120222
  Receipt Date: 20120212
  Transmission Date: 20120608
  Serious: Yes (Life-Threatening)
  Sender: FDA-Public Use
  Company Number: ZA-ALLERGAN-1202120US

PATIENT
  Sex: Male

DRUGS (2)
  1. BOTULINUM TOXIN TYPE A [Suspect]
     Indication: PRODUCT USED FOR UNKNOWN INDICATION
     Dosage: 28 UNITS, SINGLE
     Route: 030
     Dates: start: 20111122, end: 20111122
  2. JUVEDERM [Suspect]
     Indication: PRODUCT USED FOR UNKNOWN INDICATION
     Dosage: 1.3 ML, UNK

REACTIONS (1)
  - SUICIDE ATTEMPT [None]
